FAERS Safety Report 9002421 (Version 1)
Quarter: 2013Q1

REPORT INFORMATION
  Report Type: Spontaneous
  Country: US (occurrence: US)
  Receive Date: 20130107
  Receipt Date: 20130107
  Transmission Date: 20140127
  Serious: Yes (Death)
  Sender: FDA-Public Use
  Company Number: US-009507513-1301USA001392

PATIENT
  Age: 60 Year
  Sex: Male

DRUGS (1)
  1. EMEND [Suspect]
     Dosage: 150 MG, UNK
     Route: 042
     Dates: start: 20121219

REACTIONS (1)
  - Death [Fatal]
